FAERS Safety Report 6717335 (Version 4)
Quarter: 2018Q4

REPORT INFORMATION
  Report Type: Report from Study
  Country: JP (occurrence: JP)
  Receive Date: 20080803
  Receipt Date: 20181120
  Transmission Date: 20190205
  Serious: Yes (Death, Other)
  Sender: FDA-Public Use
  Company Number: PHHY2008JP15394

PATIENT
  Age: 77 Year
  Sex: Male
  Weight: 75 kg

DRUGS (11)
  1. EXJADE [Suspect]
     Active Substance: DEFERASIROX
     Indication: IRON OVERLOAD
     Dosage: 1500 MG, QD
     Route: 048
     Dates: start: 20080710, end: 20080711
  2. MINOCYCLINE HYDROCHLORIDE. [Concomitant]
     Active Substance: MINOCYCLINE HYDROCHLORIDE
     Indication: TYPE 2 DIABETES MELLITUS
     Dosage: 200 MG, UNK
     Route: 042
     Dates: start: 20080627, end: 20080701
  3. EXJADE [Suspect]
     Active Substance: DEFERASIROX
     Indication: APLASTIC ANAEMIA
     Dosage: 1500 MG, QD
     Route: 048
     Dates: start: 20080620, end: 20080626
  4. MAGLAX [Concomitant]
     Active Substance: MAGNESIUM OXIDE
     Indication: CONSTIPATION
     Dosage: 1500 MG, QD
     Route: 048
     Dates: end: 20080710
  5. ALLELOCK [Concomitant]
     Active Substance: OLOPATADINE HYDROCHLORIDE
     Indication: DERMATITIS ALLERGIC
     Dosage: 10 MG, QD
     Route: 048
     Dates: end: 20080710
  6. MODACIN [Concomitant]
     Active Substance: CEFTAZIDIME
     Indication: TYPE 2 DIABETES MELLITUS
     Dosage: 2 G, UNK
     Route: 042
     Dates: start: 20080627, end: 20080701
  7. AMBISOME [Concomitant]
     Active Substance: AMPHOTERICIN B
     Indication: TYPE 2 DIABETES MELLITUS
     Dosage: 100 MG
     Route: 042
     Dates: start: 20080630, end: 20080701
  8. MEROPEN [Concomitant]
     Active Substance: MEROPENEM
     Indication: TYPE 2 DIABETES MELLITUS
     Dosage: 1 G
     Route: 042
     Dates: start: 20080702, end: 20080711
  9. VFEND [Concomitant]
     Active Substance: VORICONAZOLE
     Indication: TYPE 2 DIABETES MELLITUS
     Dosage: 200 MG
     Route: 042
     Dates: start: 20080702, end: 20080711
  10. DESFERAL [Concomitant]
     Active Substance: DEFEROXAMINE MESYLATE
     Indication: PRODUCT USED FOR UNKNOWN INDICATION
     Dosage: 500 MG, QD
     Route: 065
     Dates: start: 20040107, end: 20080619
  11. PRIMOBOLAN-DEPOT [Concomitant]
     Active Substance: METHENOLONE ENANTHATE
     Indication: APLASTIC ANAEMIA
     Dosage: 15 MG,
     Route: 048
     Dates: end: 20080710

REACTIONS (15)
  - Platelet count decreased [Unknown]
  - Blood urea increased [Unknown]
  - C-reactive protein increased [Fatal]
  - Haemoglobin decreased [Unknown]
  - Pleural effusion [Fatal]
  - Serum ferritin increased [Unknown]
  - Hepatic function abnormal [Unknown]
  - Septic shock [Fatal]
  - Hypoglycaemia [Fatal]
  - Blood creatinine increased [Unknown]
  - Disease progression [Unknown]
  - Haematocrit decreased [Unknown]
  - White blood cell count increased [Fatal]
  - Pyrexia [Fatal]
  - Blood pressure decreased [Fatal]

NARRATIVE: CASE EVENT DATE: 20080627
